FAERS Safety Report 5731309-7 (Version None)
Quarter: 2008Q2

REPORT INFORMATION
  Report Type: 
  Country: None (occurrence: None)
  Receive Date: 20080505
  Receipt Date: 20080429
  Transmission Date: 20081010
  Serious: Yes (Other)
  Sender: FDA-Public Use
  Company Number: CHPA2008US07443

PATIENT
  Age: 63 Year
  Sex: Female

DRUGS (4)
  1. MAALOX ANTIACID/ANTIGAS/ MAX STR MULTI SYMPTOM (NCH)(MAGNESIUM HYDROXI [Suspect]
     Indication: GASTROOESOPHAGEAL REFLUX DISEASE
     Dosage: SWIG FROM BOTTLE
     Route: 048
     Dates: end: 20080429
  2. PREVACID [Concomitant]
  3. LISINOPRIL [Concomitant]
  4. DRUG THERAPY NOS (DRUG THERAPY NOS) [Concomitant]

REACTIONS (5)
  - BARRETT'S OESOPHAGUS [None]
  - DIZZINESS [None]
  - DYSPNOEA [None]
  - INTENTIONAL DRUG MISUSE [None]
  - WRONG TECHNIQUE IN DRUG USAGE PROCESS [None]
